FAERS Safety Report 22239550 (Version 1)
Quarter: 2023Q2

REPORT INFORMATION
  Report Type: Report from Study
  Country: BR (occurrence: BR)
  Receive Date: 20230421
  Receipt Date: 20230421
  Transmission Date: 20230721
  Serious: Yes (Life-Threatening, Hospitalization)
  Sender: FDA-Public Use
  Company Number: BR-SERVIER DO BRASIL-S22012860

PATIENT

DRUGS (3)
  1. PEGASPARGASE [Suspect]
     Active Substance: PEGASPARGASE
     Indication: Acute lymphocytic leukaemia
     Dosage: 2500 U/M2
     Route: 042
     Dates: start: 20220319, end: 20220319
  2. PEGASPARGASE [Suspect]
     Active Substance: PEGASPARGASE
     Dosage: 2500 U/M2
     Route: 042
     Dates: start: 20220403, end: 20220403
  3. PREDNISONE [Concomitant]
     Active Substance: PREDNISONE
     Indication: Acute lymphocytic leukaemia
     Dosage: 40 MG, UNKNOWN
     Route: 048
     Dates: start: 20220403

REACTIONS (7)
  - Pancreatitis necrotising [Recovered/Resolved]
  - Diabetes mellitus [Recovered/Resolved]
  - Abdominal pain [Recovered/Resolved]
  - Shock symptom [Recovered/Resolved]
  - Pleural effusion [Recovered/Resolved]
  - Hyperglycaemia [Recovered/Resolved]
  - Acute kidney injury [Recovered/Resolved]

NARRATIVE: CASE EVENT DATE: 20220404
